FAERS Safety Report 9763524 (Version 2)
Quarter: 2014Q1

REPORT INFORMATION
  Report Type: Spontaneous
  Country: US (occurrence: US)
  Receive Date: 20131216
  Receipt Date: 20140227
  Transmission Date: 20141002
  Serious: Yes (Hospitalization, Other)
  Sender: FDA-Public Use
  Company Number: US-OTSUKA-US-2013-12328

PATIENT
  Age: 52 Year
  Sex: Male

DRUGS (10)
  1. SAMSCA [Suspect]
     Indication: HYPONATRAEMIA
     Dosage: 15 MG MILLIGRAM(S), DAILY DOSE
     Dates: start: 20130724
  2. SAMSCA [Suspect]
     Dosage: 7.5 MG MILLIGRAM(S), DAILY DOSE
     Dates: start: 20131129
  3. ZYPREXA [Concomitant]
     Indication: PRODUCT USED FOR UNKNOWN INDICATION
     Dosage: UNK
     Dates: end: 2013
  4. VITAMINS [Concomitant]
     Indication: PRODUCT USED FOR UNKNOWN INDICATION
  5. HALDOL [Concomitant]
     Dosage: UNK
     Dates: start: 20131211
  6. COUMADIN [Concomitant]
     Dosage: 12.5 MG MILLIGRAM(S), UNK
     Dates: start: 20131123
  7. FOLVITE [Concomitant]
     Dosage: 1 MG MILLIGRAM(S), DAILY DOSE
     Dates: start: 20131123
  8. COLACE [Concomitant]
     Dosage: 100 MG MILLIGRAM(S), DAILY DOSE
  9. KEPPRA [Concomitant]
  10. TEGRETOL XR [Suspect]
     Dosage: 100 MG MILLIGRAM(S), UNK
     Dates: start: 20131123

REACTIONS (7)
  - Syncope [Unknown]
  - Convulsion [Unknown]
  - Mental status changes [Unknown]
  - Hyponatraemia [Unknown]
  - Confusional state [Unknown]
  - Off label use [Unknown]
  - Hyponatraemia [Unknown]
